FAERS Safety Report 21248361 (Version 1)
Quarter: 2022Q3

REPORT INFORMATION
  Report Type: Report from Study
  Country: DE (occurrence: DE)
  Receive Date: 20220824
  Receipt Date: 20220824
  Transmission Date: 20221027
  Serious: Yes (Hospitalization, Other)
  Sender: FDA-Public Use
  Company Number: DE-MYLANLABS-2022M1083429

PATIENT
  Sex: Female

DRUGS (14)
  1. UNSPECIFIED INGREDIENT [Suspect]
     Active Substance: UNSPECIFIED INGREDIENT
     Dosage: NO DOSE GIVEN
  2. METHOTREXATE SODIUM [Suspect]
     Active Substance: METHOTREXATE SODIUM
     Indication: Rheumatoid arthritis
     Dosage: 7.5 MG
     Dates: start: 20180924
  3. METHOTREXATE SODIUM [Suspect]
     Active Substance: METHOTREXATE SODIUM
     Dosage: 7.5 MG
     Dates: start: 20200128
  4. METHOTREXATE SODIUM [Suspect]
     Active Substance: METHOTREXATE SODIUM
     Dosage: 27.5 MG
     Dates: start: 20161206
  5. METHOTREXATE SODIUM [Suspect]
     Active Substance: METHOTREXATE SODIUM
     Dosage: 7.5 MG
     Dates: start: 20191008
  6. METHOTREXATE SODIUM [Suspect]
     Active Substance: METHOTREXATE SODIUM
     Dosage: 27.5 MG
     Dates: start: 20171016
  7. METHOTREXATE SODIUM [Suspect]
     Active Substance: METHOTREXATE SODIUM
     Dosage: 27.5 MG
     Dates: start: 20170306
  8. METHOTREXATE SODIUM [Suspect]
     Active Substance: METHOTREXATE SODIUM
     Dosage: 27.5 MG
     Dates: start: 20160905
  9. METHOTREXATE SODIUM [Suspect]
     Active Substance: METHOTREXATE SODIUM
     Dosage: 7.5 MG
     Dates: start: 20180423
  10. METHOTREXATE SODIUM [Suspect]
     Active Substance: METHOTREXATE SODIUM
     Dosage: 7.5 MG
     Dates: start: 20190411
  11. LEFLUNOMIDE [Suspect]
     Active Substance: LEFLUNOMIDE
     Indication: Rheumatoid arthritis
     Dosage: 10 MG
     Dates: start: 20191008
  12. LEFLUNOMIDE [Suspect]
     Active Substance: LEFLUNOMIDE
     Dosage: 10 MG
     Dates: start: 20200128
  13. SIMPONI [Concomitant]
     Active Substance: GOLIMUMAB
     Dosage: 50 MG
     Dates: start: 201609, end: 201707
  14. ORENCIA [Concomitant]
     Active Substance: ABATACEPT
     Dosage: 125 MG
     Dates: start: 201807, end: 201812

REACTIONS (5)
  - Rheumatoid arthritis [Recovered/Resolved]
  - Osteoarthritis [Recovered/Resolved]
  - Spinal osteoarthritis [Recovered/Resolved]
  - Bronchial obstruction [Not Recovered/Not Resolved]
  - Hepatic enzyme increased [Unknown]

NARRATIVE: CASE EVENT DATE: 20190626
